FAERS Safety Report 5266041-X (Version None)
Quarter: 2007Q1

REPORT INFORMATION
  Report Type: 
  Country: None (occurrence: None)
  Receive Date: 20070313
  Receipt Date: 20070313
  Transmission Date: 20070707
  Serious: Yes (Other)
  Sender: FDA-Public Use
  Company Number: None

PATIENT
  Age: 45 Year
  Sex: Male
  Weight: 103.8 kg

DRUGS (1)
  1. QUETIAPINE FUMARATE [Suspect]
     Indication: BIPOLAR DISORDER
     Dosage: 150MG PO HS
     Route: 048
     Dates: start: 20060201

REACTIONS (9)
  - ANION GAP INCREASED [None]
  - CONDITION AGGRAVATED [None]
  - DIABETES MELLITUS INADEQUATE CONTROL [None]
  - FATIGUE [None]
  - HYPERGLYCAEMIA [None]
  - INFLUENZA LIKE ILLNESS [None]
  - POLYURIA [None]
  - VISION BLURRED [None]
  - WEIGHT INCREASED [None]
